FAERS Safety Report 17542557 (Version 2)
Quarter: 2020Q1

REPORT INFORMATION
  Report Type: Report from Study
  Country: CH (occurrence: CH)
  Receive Date: 20200315
  Receipt Date: 20200326
  Transmission Date: 20200409
  Serious: Yes (Hospitalization)
  Sender: FDA-Public Use
  Company Number: CH-ABBVIE-20K-151-3315972-00

PATIENT
  Sex: Male

DRUGS (3)
  1. DUODOPA [Suspect]
     Active Substance: CARBIDOPA\LEVODOPA
     Indication: PARKINSON^S DISEASE
     Route: 050
     Dates: start: 20191209, end: 20200107
  2. DUODOPA [Suspect]
     Active Substance: CARBIDOPA\LEVODOPA
     Dosage: MD: 9 ML,CR: 4.2 ML/H, CONTINUOUS RATE NIGHT: 2.2 ML/H, EXTRA DOSE: 2 ML
     Route: 050
     Dates: start: 20200107, end: 20200129
  3. DUODOPA [Suspect]
     Active Substance: CARBIDOPA\LEVODOPA
     Dosage: MD: 9 ML,CD: 4 ML/H, CONTINUOUS RATE NIGHT: 2.2 ML/H, EXTRA DOSE: 2 ML  24 H THERAPY
     Route: 050
     Dates: start: 20200129

REACTIONS (1)
  - Derailment [Unknown]
